FAERS Safety Report 5529766-4 (Version None)
Quarter: 2007Q4

REPORT INFORMATION
  Report Type: 
  Country: None (occurrence: None)
  Receive Date: 20071127
  Receipt Date: 20071115
  Transmission Date: 20080405
  Serious: Yes (Other)
  Sender: FDA-Public Use
  Company Number: 2007335623

PATIENT
  Age: 42 Year
  Sex: Female

DRUGS (2)
  1. LUBRIDERM ADVANCED THERAPY CREAMY LOTION (NO ACTIVE INGREDIENT) [Suspect]
     Indication: DRY SKIN
     Dosage: HALF A CUP; TWICE TOTAL, TOPICAL
     Route: 061
     Dates: start: 20070101, end: 20071114
  2. LANTUS [Concomitant]

REACTIONS (8)
  - DRY SKIN [None]
  - ERYTHEMA [None]
  - EYE SWELLING [None]
  - OCULAR HYPERAEMIA [None]
  - OEDEMA PERIPHERAL [None]
  - PRURITUS [None]
  - SWELLING FACE [None]
  - URTICARIA [None]
